FAERS Safety Report 7769956-3 (Version None)
Quarter: 2011Q3

REPORT INFORMATION
  Report Type: 
  Country: None (occurrence: None)
  Receive Date: 20110922
  Receipt Date: 20110913
  Transmission Date: 20111222
  Serious: Yes (Death, Other)
  Sender: FDA-Public Use
  Company Number: JP-GLAXOSMITHKLINE-B0288099A

PATIENT
  Sex: Female
  Weight: 53 kg

DRUGS (20)
  1. TRANDOLAPRIL [Concomitant]
     Dosage: 1MG PER DAY
     Route: 048
     Dates: start: 20020419, end: 20020902
  2. SULFAMETHOXAZOLE [Concomitant]
     Dosage: 1G PER DAY
     Route: 048
     Dates: start: 20020515
  3. ZOVIRAX [Concomitant]
     Dosage: 200MG PER DAY
     Route: 048
     Dates: start: 20020823, end: 20021002
  4. SELBEX [Concomitant]
     Dosage: 240MG PER DAY
     Route: 048
     Dates: start: 20020419, end: 20020902
  5. LOSARTAN POTASSIUM [Concomitant]
     Dosage: 50MG PER DAY
     Route: 048
     Dates: start: 20020529
  6. KYTRIL [Concomitant]
     Dosage: 6MG PER DAY
     Route: 042
     Dates: start: 20020827, end: 20020828
  7. CYCLOPHOSPHAMIDE [Suspect]
     Indication: MULTIPLE MYELOMA
     Dates: start: 20020625, end: 20020719
  8. BLOOD TRANSFUSION [Concomitant]
     Dates: start: 20020902, end: 20021024
  9. DIFLUCAN [Concomitant]
     Dosage: 100MG PER DAY
     Route: 048
     Dates: start: 20020515
  10. LEVOFLOXACIN [Concomitant]
     Dosage: 100MG PER DAY
     Route: 048
  11. UNKNOWN DRUG [Concomitant]
     Dosage: 40ML PER DAY
     Route: 042
     Dates: start: 20020826, end: 20020921
  12. GRAN [Concomitant]
     Dates: start: 20020904, end: 20020910
  13. ALLOPURINOL [Concomitant]
     Dosage: 200MG PER DAY
     Route: 048
     Dates: start: 20020826, end: 20020830
  14. FRAGMIN [Concomitant]
     Dosage: 31IU3 PER DAY
     Route: 042
     Dates: start: 20020826, end: 20020921
  15. PERSANTIN [Concomitant]
     Dosage: 300MG PER DAY
     Route: 048
     Dates: start: 20020408, end: 20020902
  16. FAMOTIDINE [Concomitant]
     Dosage: 10MG PER DAY
     Route: 048
     Dates: start: 20010419
  17. POLYMYXIN [Concomitant]
     Dosage: 3IU6 PER DAY
     Route: 048
     Dates: start: 20020816
  18. FIRSTCIN [Concomitant]
     Dosage: 1G PER DAY
     Route: 042
     Dates: start: 20020830, end: 20020902
  19. ALKERAN [Suspect]
     Indication: STEM CELL TRANSPLANT
     Dosage: 100MG PER DAY
     Route: 042
     Dates: start: 20020827, end: 20020828
  20. ALENDRONATE SODIUM [Concomitant]
     Dosage: 5MG PER DAY
     Route: 048
     Dates: start: 20020418, end: 20020820

REACTIONS (8)
  - CARDIAC FAILURE [None]
  - OXYGEN SATURATION DECREASED [None]
  - URINE OUTPUT DECREASED [None]
  - CARDIOMEGALY [None]
  - RENAL FAILURE [None]
  - PULMONARY CONGESTION [None]
  - NEPHROTIC SYNDROME [None]
  - WEIGHT INCREASED [None]
